FAERS Safety Report 16634680 (Version 1)
Quarter: 2019Q3

REPORT INFORMATION
  Report Type: Report from Study
  Country: TW (occurrence: TW)
  Receive Date: 20190726
  Receipt Date: 20190726
  Transmission Date: 20191004
  Serious: Yes (Other)
  Sender: FDA-Public Use
  Company Number: TW-AMGEN-TWNSL2019116769

PATIENT
  Age: 65 Year
  Sex: Female

DRUGS (1)
  1. PROLIA [Suspect]
     Active Substance: DENOSUMAB
     Indication: PRODUCT USED FOR UNKNOWN INDICATION
     Dosage: 60 MILLIGRAM, Q6MO
     Route: 065

REACTIONS (9)
  - Pain in extremity [Unknown]
  - Fall [Unknown]
  - Carpal tunnel syndrome [Unknown]
  - Exostosis [Unknown]
  - Arthralgia [Unknown]
  - Bone pain [Unknown]
  - Scoliosis [Unknown]
  - Gait inability [Unknown]
  - Myalgia [Unknown]

NARRATIVE: CASE EVENT DATE: 2019
